FAERS Safety Report 8121641-4 (Version None)
Quarter: 2012Q1

REPORT INFORMATION
  Report Type: 
  Country: None (occurrence: None)
  Receive Date: 20120208
  Receipt Date: 20120208
  Transmission Date: 20120608
  Serious: No
  Sender: FDA-Public Use
  Company Number: None

PATIENT
  Age: 48 Year
  Sex: Female

DRUGS (1)
  1. CLIMARA PRO [Suspect]
     Dosage: ONE PATCH
     Route: 062
     Dates: start: 20110818, end: 20120202

REACTIONS (3)
  - PRODUCT QUALITY ISSUE [None]
  - BLISTER [None]
  - RASH PRURITIC [None]
